FAERS Safety Report 6577521-9 (Version None)
Quarter: 2010Q1

REPORT INFORMATION
  Report Type: 
  Country: None (occurrence: None)
  Receive Date: 20100211
  Receipt Date: 20100202
  Transmission Date: 20100710
  Serious: Yes (Other)
  Sender: FDA-Public Use
  Company Number: GB-PERRIGO-10GB006717

PATIENT

DRUGS (2)
  1. IBUPROFEN 16028/0013 200 MG [Suspect]
     Indication: OVERDOSE
     Dosage: 12 G, SINGLE
     Route: 048
  2. PARACETAMOL 16028/0012 500 MG [Suspect]
     Indication: OVERDOSE
     Dosage: 5 G, SINGLE
     Route: 048

REACTIONS (2)
  - MULTIPLE DRUG OVERDOSE [None]
  - RENAL FAILURE ACUTE [None]
